FAERS Safety Report 6083945-9 (Version None)
Quarter: 2009Q1

REPORT INFORMATION
  Report Type: 
  Country: None (occurrence: None)
  Receive Date: 20090219
  Receipt Date: 20090211
  Transmission Date: 20090719
  Serious: Yes (Other)
  Sender: FDA-Public Use
  Company Number: US-PFIZER INC-2009153486

PATIENT

DRUGS (1)
  1. DETROL LA [Suspect]
     Dosage: 16 MG, UNK

REACTIONS (2)
  - DRUG ADMINISTRATION ERROR [None]
  - RESPIRATORY FAILURE [None]
